FAERS Safety Report 25856523 (Version 7)
Quarter: 2025Q4

REPORT INFORMATION
  Report Type: Report from Study
  Country: EU (occurrence: EU)
  Receive Date: 20250929
  Receipt Date: 20251125
  Transmission Date: 20260117
  Serious: Yes (Hospitalization)
  Sender: ABBVIE
  Company Number: EU-ABBVIE-6477780

PATIENT
  Age: 76 Year
  Sex: Male

DRUGS (2)
  1. FOSCARBIDOPA\FOSLEVODOPA [Suspect]
     Active Substance: FOSCARBIDOPA\FOSLEVODOPA
     Indication: Parkinson^s disease
     Dosage: CRN: 0.18ML/H CR: 0.27ML/H CRH: 0.3ML/H ED:0.15ML LAST ADMIN DATE 2025
     Route: 058
     Dates: start: 20250923
  2. FOSCARBIDOPA\FOSLEVODOPA [Suspect]
     Active Substance: FOSCARBIDOPA\FOSLEVODOPA
     Dosage: FIRST ADMIN DATE: 2025 CRN:0.8ML/H CRB: 0.27ML/H ?CRH:0.3ML/H ED:0.15ML
     Route: 058
     Dates: end: 20251107

REACTIONS (12)
  - Fall [Not Recovered/Not Resolved]
  - Infusion site erythema [Recovering/Resolving]
  - Upper limb fracture [Not Recovered/Not Resolved]
  - Catheter site induration [Not Recovered/Not Resolved]
  - Lower limb fracture [Not Recovered/Not Resolved]
  - Catheter site swelling [Not Recovered/Not Resolved]
  - Infusion site inflammation [Not Recovered/Not Resolved]
  - Intentional medical device removal by patient [Not Recovered/Not Resolved]
  - Infusion site abscess [Recovering/Resolving]
  - Dysphagia [Not Recovered/Not Resolved]
  - Cardiac failure [Not Recovered/Not Resolved]
  - Restlessness [Not Recovered/Not Resolved]

NARRATIVE: CASE EVENT DATE: 20250101
